FAERS Safety Report 9969145 (Version 2)
Quarter: 2015Q4

REPORT INFORMATION
  Report Type: Report from Study
  Country: US (occurrence: US)
  Receive Date: 20140306
  Receipt Date: 20151125
  Transmission Date: 20160305
  Serious: Yes (Other)
  Sender: FDA-Public Use
  Company Number: US-ROCHE-1340289

PATIENT
  Sex: Female

DRUGS (17)
  1. AVASTIN [Suspect]
     Active Substance: BEVACIZUMAB
     Indication: RETINAL VEIN OCCLUSION
     Route: 065
     Dates: start: 20110528
  2. HYDROCHLOROTHIAZIDE. [Concomitant]
     Active Substance: HYDROCHLOROTHIAZIDE
     Route: 048
  3. LOMOTIL (UNITED STATES) [Concomitant]
     Dosage: 2.5-0.025 TABLETS
     Route: 048
  4. LUCENTIS [Suspect]
     Active Substance: RANIBIZUMAB
     Indication: RETINAL VEIN OCCLUSION
     Dosage: OD
     Route: 050
  5. BETADINE [Concomitant]
     Active Substance: POVIDONE-IODINE
  6. NEO-SYNEPHRINE [Concomitant]
     Active Substance: PHENYLEPHRINE HYDROCHLORIDE
     Route: 065
  7. DETROL [Concomitant]
     Active Substance: TOLTERODINE TARTRATE
     Route: 048
  8. FLEXERIL [Concomitant]
     Active Substance: CYCLOBENZAPRINE HYDROCHLORIDE
     Route: 048
  9. REQUIP [Concomitant]
     Active Substance: ROPINIROLE HYDROCHLORIDE
     Route: 048
  10. GENTAMYCIN [Concomitant]
     Active Substance: GENTAMICIN
     Dosage: FOR 3 DAYS
     Route: 047
  11. SUCRALFATE. [Concomitant]
     Active Substance: SUCRALFATE
     Route: 048
  12. ZOLOFT [Concomitant]
     Active Substance: SERTRALINE HYDROCHLORIDE
     Route: 048
  13. OMEPRAZOLE. [Concomitant]
     Active Substance: OMEPRAZOLE
     Route: 048
  14. LIDOCAINE. [Concomitant]
     Active Substance: LIDOCAINE
     Route: 065
  15. ACIPHEX [Concomitant]
     Active Substance: RABEPRAZOLE SODIUM
     Route: 048
  16. CELEBREX [Concomitant]
     Active Substance: CELECOXIB
     Route: 048
  17. SALSALATE. [Concomitant]
     Active Substance: SALSALATE
     Route: 048

REACTIONS (4)
  - Off label use [Unknown]
  - Angiogram abnormal [Unknown]
  - Vision blurred [Unknown]
  - Macular oedema [Unknown]
